FAERS Safety Report 8380020-5 (Version None)
Quarter: 2012Q2

REPORT INFORMATION
  Report Type: 
  Country: None (occurrence: None)
  Receive Date: 20120523
  Receipt Date: 20120518
  Transmission Date: 20120825
  Serious: No
  Sender: FDA-Public Use
  Company Number: US-PFIZER INC-2012121767

PATIENT
  Sex: Male

DRUGS (5)
  1. LYRICA [Suspect]
     Dosage: UNK
     Route: 048
     Dates: start: 20120508
  2. LIPITOR [Suspect]
     Dosage: 40 MG, 1X/DAY
     Route: 048
  3. CELEBREX [Suspect]
     Dosage: 200 MG, 1X/DAY
     Route: 048
  4. NEURONTIN [Suspect]
     Dosage: UNK
  5. EFFEXOR XR [Suspect]
     Dosage: 75 MG, 1X/DAY
     Route: 048
     Dates: start: 20120417

REACTIONS (3)
  - PAIN [None]
  - CONFUSIONAL STATE [None]
  - RESTLESS LEGS SYNDROME [None]
